FAERS Safety Report 11603310 (Version 2)
Quarter: 2016Q1

REPORT INFORMATION
  Report Type: Spontaneous
  Country: US (occurrence: US)
  Receive Date: 20151007
  Receipt Date: 20160111
  Transmission Date: 20160525
  Serious: Yes (Other)
  Sender: FDA-Public Use
  Company Number: PHEH2015US019629

PATIENT
  Age: 55 Year
  Sex: Female
  Weight: 72.57 kg

DRUGS (2)
  1. EXEMESTANE. [Suspect]
     Active Substance: EXEMESTANE
     Indication: BREAST CANCER
     Dosage: 25 MG, QD
     Route: 048
     Dates: start: 20150218
  2. AFINITOR [Suspect]
     Active Substance: EVEROLIMUS
     Indication: BREAST CANCER
     Dosage: 5 MG, QD
     Route: 048
     Dates: start: 20150724

REACTIONS (3)
  - Fatigue [Unknown]
  - Blood glucose increased [Unknown]
  - Dizziness postural [Unknown]

NARRATIVE: CASE EVENT DATE: 20150909
